FAERS Safety Report 10145349 (Version 1)
Quarter: 2014Q2

REPORT INFORMATION
  Report Type: Spontaneous
  Country: US (occurrence: US)
  Receive Date: 20140501
  Receipt Date: 20140501
  Transmission Date: 20141212
  Serious: No
  Sender: FDA-Public Use
  Company Number: US-BIOGENIDEC-2014BI037750

PATIENT
  Sex: Female

DRUGS (8)
  1. TECFIDERA [Suspect]
     Indication: MULTIPLE SCLEROSIS
     Route: 048
     Dates: start: 201401
  2. CENTRUM [Concomitant]
  3. PREDNISONE [Concomitant]
  4. ANASTROZOLE [Concomitant]
  5. CLONAZEPAM [Concomitant]
  6. NEXIUM [Concomitant]
  7. LEXAPRO [Concomitant]
  8. BIOTEN [Concomitant]

REACTIONS (3)
  - Musculoskeletal stiffness [Unknown]
  - Flushing [Unknown]
  - Nausea [Unknown]
